FAERS Safety Report 7982290-1 (Version None)
Quarter: 2011Q4

REPORT INFORMATION
  Report Type: 
  Country: None (occurrence: None)
  Receive Date: 20111213
  Receipt Date: 20111129
  Transmission Date: 20120403
  Serious: Yes (Hospitalization)
  Sender: FDA-Public Use
  Company Number: 2011AP002765

PATIENT
  Age: 52 Year
  Sex: Female

DRUGS (12)
  1. ATORVASTATIN [Concomitant]
  2. LAMOTRIGINE [Suspect]
     Indication: EPILEPSY
  3. CITALOPRAM HYDROBROMIDE [Suspect]
     Indication: PRODUCT USED FOR UNKNOWN INDICATION
  4. ENALAPRIL MALEATE [Concomitant]
  5. AMLODIPINE [Concomitant]
  6. METFORMIN HCL [Concomitant]
  7. ATENOLOL [Concomitant]
  8. DIPYRIDAMOLE [Concomitant]
  9. CARBAMAZEPINE [Suspect]
     Indication: EPILEPSY
     Dosage: 600 MG;, 600 MG; 300 MG;
  10. BENDROFLUMETHIAZIDE (BENDROFLUMETHIAZIDE) [Suspect]
     Indication: PRODUCT USED FOR UNKNOWN INDICATION
  11. GLICLAZIDE [Concomitant]
  12. ASPIRIN [Concomitant]

REACTIONS (6)
  - BLOOD LACTIC ACID INCREASED [None]
  - HYPOKALAEMIA [None]
  - HYPONATRAEMIA [None]
  - HYPERAMMONAEMIA [None]
  - VULVOVAGINAL DISCOMFORT [None]
  - URINARY TRACT INFECTION [None]
